FAERS Safety Report 6268574-6 (Version None)
Quarter: 2009Q3

REPORT INFORMATION
  Report Type: 
  Country: None (occurrence: None)
  Receive Date: 20090715
  Receipt Date: 20090713
  Transmission Date: 20100115
  Serious: Yes (Life-Threatening, Hospitalization)
  Sender: FDA-Public Use
  Company Number: JP-BRISTOL-MYERS SQUIBB COMPANY-14635247

PATIENT
  Age: 1 Day
  Sex: Male

DRUGS (8)
  1. RESLIN [Suspect]
     Indication: PANIC DISORDER
     Dosage: RESLIN ND
     Route: 051
  2. LEXOTAN [Suspect]
     Indication: PANIC DISORDER
     Route: 051
  3. SILECE [Suspect]
     Indication: PANIC DISORDER
  4. TRYPTANOL [Suspect]
     Indication: PANIC DISORDER
     Route: 051
  5. DEPAS [Suspect]
     Indication: PANIC DISORDER
     Route: 051
  6. BENZALIN [Suspect]
     Indication: PANIC DISORDER
     Route: 051
  7. PAXIL [Suspect]
     Indication: PANIC DISORDER
     Route: 051
  8. AMOXAN [Suspect]
     Indication: PANIC DISORDER
     Route: 051

REACTIONS (2)
  - IRRITABILITY [None]
  - RESPIRATORY DISORDER NEONATAL [None]
